FAERS Safety Report 23986430 (Version 6)
Quarter: 2025Q3

REPORT INFORMATION
  Report Type: Spontaneous
  Country: US (occurrence: US)
  Receive Date: 20240618
  Receipt Date: 20250809
  Transmission Date: 20251021
  Serious: Yes (Death, Hospitalization, Other)
  Sender: ALEXION PHARMACEUTICALS
  Company Number: 2024A139508

PATIENT
  Age: 73 Year
  Sex: Male
  Weight: 61.1 kg

DRUGS (17)
  1. OLAPARIB [Suspect]
     Active Substance: OLAPARIB
     Indication: Adenocarcinoma
     Dosage: 600 MILLIGRAM, BID
     Dates: start: 20230928, end: 20231023
  2. OLAPARIB [Suspect]
     Active Substance: OLAPARIB
     Dosage: 100 MILLIGRAM, BID
     Dates: start: 20240202, end: 20240218
  3. OLAPARIB [Suspect]
     Active Substance: OLAPARIB
     Dosage: 100 MILLIGRAM, BID
     Dates: start: 20240219, end: 20240314
  4. OLAPARIB [Suspect]
     Active Substance: OLAPARIB
     Dosage: 100 MILLIGRAM, BID
     Dates: start: 20240315, end: 20240412
  5. VUDALIMAB [Suspect]
     Active Substance: VUDALIMAB
     Route: 065
  6. LIPITOR [Concomitant]
     Active Substance: ATORVASTATIN CALCIUM
     Route: 065
  7. LISINOPRIL [Concomitant]
     Active Substance: LISINOPRIL
  8. ACETAMINOPHEN [Concomitant]
     Active Substance: ACETAMINOPHEN
     Route: 065
  9. FLOMAX [Concomitant]
     Active Substance: TAMSULOSIN HYDROCHLORIDE
     Route: 065
  10. OXYCODONE [Concomitant]
     Active Substance: OXYCODONE
     Route: 065
  11. KENALOG [Concomitant]
     Active Substance: TRIAMCINOLONE ACETONIDE
     Route: 065
  12. IBUPROFEN [Concomitant]
     Active Substance: IBUPROFEN
     Route: 065
  13. PREDNISONE [Concomitant]
     Active Substance: PREDNISONE
     Route: 065
  14. XARELTO [Concomitant]
     Active Substance: RIVAROXABAN
     Route: 065
  15. ELIQUIS [Concomitant]
     Active Substance: APIXABAN
     Route: 065
  16. ELIGARD [Concomitant]
     Active Substance: LEUPROLIDE ACETATE
     Route: 065
  17. HEPARIN [Concomitant]
     Active Substance: HEPARIN SODIUM
     Route: 065

REACTIONS (10)
  - Humerus fracture [Recovered/Resolved]
  - Death [Fatal]
  - Malignant neoplasm progression [Unknown]
  - Deep vein thrombosis [Recovering/Resolving]
  - Fall [Unknown]
  - Anaemia [Unknown]
  - Dermatitis acneiform [Unknown]
  - Overdose [Unknown]
  - Inappropriate schedule of product administration [Unknown]
  - Therapy change [Unknown]

NARRATIVE: CASE EVENT DATE: 20230928
